FAERS Safety Report 10171093 (Version 1)
Quarter: 2014Q2

REPORT INFORMATION
  Report Type: Spontaneous
  Country: US (occurrence: None)
  Receive Date: 20140513
  Receipt Date: 20140513
  Transmission Date: 20141212
  Serious: Yes (Hospitalization)
  Sender: FDA-Public Use
  Company Number: None

PATIENT
  Sex: Female

DRUGS (1)
  1. IMBRUVICA [Suspect]
     Route: 048
     Dates: start: 20140403

REACTIONS (4)
  - Syncope [None]
  - Chills [None]
  - Hypoaesthesia [None]
  - Anaemia [None]
